FAERS Safety Report 25527137 (Version 1)
Quarter: 2025Q3

REPORT INFORMATION
  Report Type: Spontaneous
  Country: TW (occurrence: TW)
  Receive Date: 20250708
  Receipt Date: 20250708
  Transmission Date: 20251021
  Serious: Yes (Death, Other)
  Sender: AMGEN
  Company Number: TW-AMGEN-TWNSP2025129558

PATIENT

DRUGS (2)
  1. PROLIA [Suspect]
     Active Substance: DENOSUMAB
     Indication: Rheumatoid arthritis
     Route: 065
  2. ETANERCEPT [Suspect]
     Active Substance: ETANERCEPT
     Indication: Rheumatoid arthritis
     Route: 065

REACTIONS (4)
  - Death [Fatal]
  - Fracture [Unknown]
  - Osteoporosis [Unknown]
  - Off label use [Unknown]
